FAERS Safety Report 6050169-0 (Version None)
Quarter: 2009Q1

REPORT INFORMATION
  Report Type: 
  Country: None (occurrence: None)
  Receive Date: 20090122
  Receipt Date: 20090122
  Transmission Date: 20090719
  Serious: No
  Sender: FDA-Public Use
  Company Number: None

PATIENT
  Sex: Male
  Weight: 95.2554 kg

DRUGS (1)
  1. DURAGESIC-50 [Suspect]
     Indication: PAIN
     Dosage: 50MCG Q48 TRANSDERMAL
     Route: 062
     Dates: start: 20020416, end: 20020420

REACTIONS (2)
  - APPLICATION SITE RASH [None]
  - PRODUCT QUALITY ISSUE [None]
